FAERS Safety Report 4891988-3 (Version None)
Quarter: 2006Q1

REPORT INFORMATION
  Report Type: 
  Country: None (occurrence: None)
  Receive Date: 20060123
  Receipt Date: 20060110
  Transmission Date: 20060701
  Serious: Yes (Other)
  Sender: FDA-Public Use
  Company Number: GXKR2005BR01884

PATIENT
  Age: 37 Year
  Sex: Female
  Weight: 67.9942 kg

DRUGS (6)
  1. AMOXICILLIN TRIHYDRATE [Suspect]
     Indication: ENDODONTIC PROCEDURE
     Dosage: 500 MG TID ORAL
     Route: 048
  2. METERGIN (METHYLERGOMETRINE MALEATE) SUGAR-COATED TABLET, 0.125 MG [Suspect]
     Dosage: INJECTION NOS
  3. DEPO-PROVERA SUSPENSION/INJ [Suspect]
     Indication: CONTRACEPTION
  4. DICLOFENAC (DICLOFENAC) [Concomitant]
  5. PROPANOLOL  (PROPANOLOL) [Concomitant]
  6. DIAZEPAN (SEE IMAGE) [Concomitant]

REACTIONS (5)
  - ABDOMINAL PAIN [None]
  - ABORTION [None]
  - DRUG EXPOSURE DURING PREGNANCY [None]
  - UTERINE HAEMORRHAGE [None]
  - VAGINAL HAEMORRHAGE [None]
